FAERS Safety Report 21836887 (Version 2)
Quarter: 2023Q1

REPORT INFORMATION
  Report Type: Report from Study
  Country: US (occurrence: US)
  Receive Date: 20230109
  Receipt Date: 20230112
  Transmission Date: 20230418
  Serious: Yes (Other)
  Sender: FDA-Public Use
  Company Number: US-ABBVIE-4260048

PATIENT
  Age: 66 Year
  Sex: Male

DRUGS (1)
  1. SKYRIZI [Suspect]
     Active Substance: RISANKIZUMAB-RZAA
     Indication: Psoriasis
     Route: 058
     Dates: start: 20220622

REACTIONS (4)
  - Hip arthroplasty [Recovering/Resolving]
  - Skin haemorrhage [Recovering/Resolving]
  - Pruritus [Recovering/Resolving]
  - Acne [Recovering/Resolving]

NARRATIVE: CASE EVENT DATE: 20221201
